FAERS Safety Report 5078800-7 (Version None)
Quarter: 2006Q3

REPORT INFORMATION
  Report Type: 
  Country: None (occurrence: None)
  Receive Date: 20060814
  Receipt Date: 20060802
  Transmission Date: 20061208
  Serious: Yes (Hospitalization)
  Sender: FDA-Public Use
  Company Number: PHRM2006FR02259

PATIENT
  Age: 53 Year
  Sex: Female

DRUGS (1)
  1. LAMISIL [Suspect]
     Indication: NAIL TINEA
     Dosage: 250 MG, QD
     Route: 048
     Dates: end: 20060501

REACTIONS (6)
  - BLOOD BILIRUBIN ABNORMAL [None]
  - CYTOLYTIC HEPATITIS [None]
  - HEPATITIS CHOLESTATIC [None]
  - JAUNDICE [None]
  - PROTHROMBIN TIME RATIO [None]
  - PRURITUS [None]
